FAERS Safety Report 8911835 (Version 1)
Quarter: 2012Q4

REPORT INFORMATION
  Report Type: Spontaneous
  Country: US (occurrence: None)
  Receive Date: 20121113
  Receipt Date: 20121113
  Transmission Date: 20130627
  Serious: Yes (Hospitalization)
  Sender: FDA-Public Use
  Company Number: 1483435

PATIENT
  Age: 56 Year
  Sex: Female

DRUGS (11)
  1. AZITHROMYCIN [Suspect]
     Indication: ATYPICAL PNEUMONIA
  2. CYTARABINE [Suspect]
     Indication: ACUTE MYELOID LEUKEMIA
  3. FLUDARABINE PHOSPHATE [Suspect]
     Indication: ACUTE MYELOID LEUKEMIA
  4. FLUCONAZOLE [Suspect]
     Indication: PROPHYLAXIS
  5. FLUCONAZOLE [Suspect]
     Indication: NEUTROPENIA
  6. CEFEPIME HYDROCHLORIDE [Suspect]
     Indication: NEUTROPENIC FEVER
  7. IDARUBICIN [Suspect]
     Indication: ACUTE MYELOID LEUKEMIA
  8. GRANULOCYTE COLONY STIMULATING FACTOR [Suspect]
     Indication: ACUTE MYELOID LEUKEMIA
  9. LINEZOLID [Suspect]
     Indication: ENTEROCOCCAL BACTEREMIA
  10. ACYCLOVIR [Suspect]
     Indication: PROPHYLAXIS
  11. ACYCLOVIR [Suspect]
     Indication: NEUTROPENIA

REACTIONS (4)
  - Immune reconstitution inflammatory syndrome [None]
  - Febrile neutropenia [None]
  - Enterococcal bacteraemia [None]
  - Atypical pneumonia [None]
